FAERS Safety Report 22294314 (Version 2)
Quarter: 2023Q2

REPORT INFORMATION
  Report Type: Spontaneous
  Country: US (occurrence: US)
  Receive Date: 20230508
  Receipt Date: 20230508
  Transmission Date: 20230721
  Serious: No
  Sender: FDA-Public Use
  Company Number: US-ABBVIE-4753210

PATIENT
  Weight: 63.956 kg

DRUGS (3)
  1. CREON [Suspect]
     Active Substance: PANCRELIPASE AMYLASE\PANCRELIPASE LIPASE\PANCRELIPASE PROTEASE
     Indication: Pancreatic failure
     Dosage: 36000 UNITS?2 CAPS WITH MEAL 1 CAP WITH SNACK
     Route: 048
     Dates: start: 20210805
  2. CREON [Suspect]
     Active Substance: PANCRELIPASE AMYLASE\PANCRELIPASE LIPASE\PANCRELIPASE PROTEASE
     Indication: Pancreatic failure
     Dosage: 36000 UNITS? 3 CAPS WITH MEAL AND 2 CAPS WITH SNACK
     Route: 048
     Dates: start: 20230501
  3. PEPCID [Concomitant]
     Active Substance: FAMOTIDINE
     Indication: Dyspepsia

REACTIONS (5)
  - Gastrointestinal disorder [Recovering/Resolving]
  - Abdominal distension [Recovering/Resolving]
  - Flatulence [Recovering/Resolving]
  - Diarrhoea [Recovering/Resolving]
  - Intentional product misuse [Not Recovered/Not Resolved]
